FAERS Safety Report 4700960-5 (Version None)
Quarter: 2005Q2

REPORT INFORMATION
  Report Type: 
  Country: None (occurrence: None)
  Receive Date: 20050628
  Receipt Date: 20050623
  Transmission Date: 20051028
  Serious: Yes (Hospitalization)
  Sender: FDA-Public Use
  Company Number: US-KINGPHARMUSA00001-K200500875

PATIENT
  Age: 73 Year
  Sex: Female

DRUGS (2)
  1. ALTACE [Suspect]
  2. ATENOLOL [Suspect]

REACTIONS (7)
  - ATRIAL FIBRILLATION [None]
  - BALANCE DISORDER [None]
  - CEREBROVASCULAR ACCIDENT [None]
  - CONFUSIONAL STATE [None]
  - DIFFICULTY IN WALKING [None]
  - MEMORY IMPAIRMENT [None]
  - VISUAL FIELD DEFECT [None]
